FAERS Safety Report 7554134-3 (Version None)
Quarter: 2011Q2

REPORT INFORMATION
  Report Type: 
  Country: None (occurrence: None)
  Receive Date: 20110617
  Receipt Date: 20110602
  Transmission Date: 20111010
  Serious: Yes (Hospitalization, Other)
  Sender: FDA-Public Use
  Company Number: GB-JNJFOC-20110602099

PATIENT
  Age: 63 Year
  Sex: Female
  Weight: 49 kg

DRUGS (4)
  1. OTHER BIOLOGICS [Suspect]
     Indication: RHEUMATOID ARTHRITIS
  2. INFLIXIMAB, RECOMBINANT [Suspect]
     Indication: RHEUMATOID ARTHRITIS
     Route: 042
     Dates: start: 20020409, end: 20021215
  3. OSTEOPOROSIS MEDICINE [Concomitant]
  4. METHOTREXATE [Concomitant]
     Dates: start: 20020409

REACTIONS (1)
  - BREAST CANCER [None]
